FAERS Safety Report 7029767-3 (Version None)
Quarter: 2010Q4

REPORT INFORMATION
  Report Type: 
  Country: None (occurrence: None)
  Receive Date: 20101001
  Receipt Date: 20100923
  Transmission Date: 20110411
  Serious: Yes (Hospitalization)
  Sender: FDA-Public Use
  Company Number: 7018470

PATIENT
  Age: 43 Year
  Sex: Female

DRUGS (2)
  1. LEVOTHYROXINE SODIUM [Suspect]
     Indication: BASEDOW'S DISEASE
     Dosage: 1 DF, ORAL, MORE THAN 1 YEAR AGO
     Route: 048
  2. DESLORATADINE [Concomitant]

REACTIONS (2)
  - ANGIOEDEMA [None]
  - SKIN BURNING SENSATION [None]
